FAERS Safety Report 7988831-2 (Version None)
Quarter: 2011Q4

REPORT INFORMATION
  Report Type: 
  Country: None (occurrence: None)
  Receive Date: 20111215
  Receipt Date: 20111215
  Transmission Date: 20120403
  Serious: Yes (Other)
  Sender: FDA-Public Use
  Company Number: None

PATIENT
  Sex: Male
  Weight: 80.7403 kg

DRUGS (2)
  1. VALACYCLOVIR HYDROCHLORIDE [Suspect]
     Indication: HERPES VIRUS INFECTION
     Dosage: 500MG DAILY P.O.
     Route: 048
     Dates: start: 20111101
  2. VALACYCLOVIR HYDROCHLORIDE [Suspect]
     Indication: HERPES VIRUS INFECTION
     Dosage: 500MG DAILY P.O.
     Route: 048
     Dates: start: 20100701

REACTIONS (2)
  - HERPES VIRUS INFECTION [None]
  - PRODUCT SUBSTITUTION ISSUE [None]
